FAERS Safety Report 25942560 (Version 5)
Quarter: 2025Q4

REPORT INFORMATION
  Report Type: Report from Study
  Country: EU (occurrence: EU)
  Receive Date: 20251021
  Receipt Date: 20251216
  Transmission Date: 20260117
  Serious: Yes (Hospitalization)
  Sender: ABBVIE
  Company Number: EU-ABBVIE-6501771

PATIENT
  Age: 78 Year
  Sex: Male

DRUGS (1)
  1. FOSCARBIDOPA\FOSLEVODOPA [Suspect]
     Active Substance: FOSCARBIDOPA\FOSLEVODOPA
     Indication: Parkinson^s disease
     Dosage: CRN:0.20ML/H; CR:0.32ML/H; CRH:0.34ML/H; ED:0.20ML
     Route: 058
     Dates: start: 20250924

REACTIONS (9)
  - Contusion [Recovered/Resolved]
  - Hypokinesia [Unknown]
  - On and off phenomenon [Not Recovered/Not Resolved]
  - Needle issue [Unknown]
  - Cognitive disorder [Unknown]
  - Infusion site erythema [Recovering/Resolving]
  - Infusion site induration [Recovering/Resolving]
  - Infusion site vesicles [Recovering/Resolving]
  - Fatigue [Not Recovered/Not Resolved]

NARRATIVE: CASE EVENT DATE: 20250101
